FAERS Safety Report 12062173 (Version 1)
Quarter: 2016Q1

REPORT INFORMATION
  Report Type: Spontaneous
  Country: US (occurrence: US)
  Receive Date: 20160210
  Receipt Date: 20160210
  Transmission Date: 20160526
  Serious: Yes (Other)
  Sender: FDA-Public Use
  Company Number: US-PFIZER INC-2016070999

PATIENT
  Age: 91 Year
  Sex: Male
  Weight: 82 kg

DRUGS (2)
  1. NEURONTIN [Suspect]
     Active Substance: GABAPENTIN
     Indication: PARAESTHESIA
     Dosage: 600MG BY MOUTH AT NIGHT
     Route: 048
  2. PROCRIT [Concomitant]
     Active Substance: ERYTHROPOIETIN
     Dosage: SHOT EVERY 3 WEEKS
     Dates: start: 2013

REACTIONS (3)
  - Blood creatinine decreased [Unknown]
  - Renal impairment [Unknown]
  - Drug ineffective for unapproved indication [Unknown]
